FAERS Safety Report 14897691 (Version 1)
Quarter: 2018Q2

REPORT INFORMATION
  Report Type: Spontaneous
  Country: BR (occurrence: BR)
  Receive Date: 20180515
  Receipt Date: 20180515
  Transmission Date: 20180711
  Serious: Yes (Hospitalization)
  Sender: FDA-Public Use
  Company Number: BR-B.I. PHARMACEUTICALS,INC./RIDGEFIELD-2018-BI-025743

PATIENT
  Sex: Female
  Weight: 57 kg

DRUGS (7)
  1. ATENSINA [Suspect]
     Active Substance: CLONIDINE
     Indication: HYPERTENSION
     Route: 048
  2. CLOPIDOGREL [Concomitant]
     Active Substance: CLOPIDOGREL BISULFATE
     Indication: ANTIPLATELET THERAPY
     Route: 048
     Dates: start: 2015
  3. ATENSINA [Suspect]
     Active Substance: CLONIDINE
     Route: 065
     Dates: start: 1998, end: 1998
  4. VALSARTANA [Concomitant]
     Active Substance: VALSARTAN
     Indication: HYPERTENSION
     Route: 048
     Dates: start: 201705
  5. ASPIRINA CARDIOLOGICA [Concomitant]
     Indication: ANTIPLATELET THERAPY
     Route: 048
     Dates: start: 2015
  6. HIDROCLOROTIAZIDA [Concomitant]
     Active Substance: HYDROCHLOROTHIAZIDE
     Indication: HYPERTENSION
     Route: 048
  7. ESPIRONOLACTONA [Concomitant]
     Active Substance: SPIRONOLACTONE
     Indication: HYPERTENSION
     Route: 048

REACTIONS (6)
  - Erythema [Recovered/Resolved]
  - Renal artery arteriosclerosis [Recovered/Resolved]
  - Procedural hypertension [Unknown]
  - Hypertension [Not Recovered/Not Resolved]
  - Arterial disorder [Unknown]
  - Dry mouth [Recovered/Resolved]

NARRATIVE: CASE EVENT DATE: 1998
